FAERS Safety Report 5054414-X (Version None)
Quarter: 2006Q3

REPORT INFORMATION
  Report Type: 
  Country: None (occurrence: None)
  Receive Date: 20060713
  Receipt Date: 20060628
  Transmission Date: 20061208
  Serious: Yes (Hospitalization, Other)
  Sender: FDA-Public Use
  Company Number: DEU-2006-0002313

PATIENT
  Age: 67 Year
  Sex: Female

DRUGS (3)
  1. HYDROMORPHONE HCL [Suspect]
     Indication: BACK PAIN
     Dosage: 10 MG, DAILY, INTRATHECAL
     Route: 037
     Dates: start: 20031106, end: 20050101
  2. BUPIVACAINE [Suspect]
     Indication: BACK PAIN
     Dosage: 20 MG, DAILY, INTRATHECAL
     Route: 037
     Dates: start: 20031106, end: 20050101
  3. CLONIDINE [Concomitant]

REACTIONS (18)
  - ASTHENIA [None]
  - CATHETER RELATED COMPLICATION [None]
  - DRUG INEFFECTIVE [None]
  - FAECAL INCONTINENCE [None]
  - FLANK PAIN [None]
  - HYPOAESTHESIA [None]
  - HYPOREFLEXIA [None]
  - INFLAMMATION [None]
  - INJECTION SITE MASS [None]
  - MASS [None]
  - MUSCULAR WEAKNESS [None]
  - NECROSIS [None]
  - PAIN [None]
  - PHARMACEUTICAL PRODUCT COMPLAINT [None]
  - SCAR [None]
  - SENSORY LOSS [None]
  - SPINAL CORD COMPRESSION [None]
  - URINARY INCONTINENCE [None]
